FAERS Safety Report 11636749 (Version 2)
Quarter: 2015Q4

REPORT INFORMATION
  Report Type: Spontaneous
  Country: US (occurrence: US)
  Receive Date: 20151016
  Receipt Date: 20151028
  Transmission Date: 20160304
  Serious: Yes (Other)
  Sender: FDA-Public Use
  Company Number: US-DRREDDYS-USA/USA/15/0053396

PATIENT
  Sex: Male

DRUGS (2)
  1. ZENATANE [Suspect]
     Active Substance: ISOTRETINOIN
     Indication: ACNE
     Dates: start: 20150827
  2. ZENATANE [Suspect]
     Active Substance: ISOTRETINOIN
     Dates: start: 20150730

REACTIONS (2)
  - Depression [Unknown]
  - Fatigue [Unknown]
